FAERS Safety Report 9475682 (Version 2)
Quarter: 2013Q4

REPORT INFORMATION
  Report Type: Report from Study
  Country: AR (occurrence: AR)
  Receive Date: 20130826
  Receipt Date: 20131011
  Transmission Date: 20140711
  Serious: Yes (Hospitalization, Other)
  Sender: FDA-Public Use
  Company Number: PHHY2013AR091783

PATIENT
  Sex: Female

DRUGS (2)
  1. DIOVAN [Suspect]
     Indication: BLOOD PRESSURE ABNORMAL
     Dosage: 1 DF, (160 MG) PER DAY
     Route: 048
     Dates: start: 2011, end: 201307
  2. DIOVAN [Suspect]
     Dosage: 1 DF, (160 MG) PER DAY
     Route: 048
     Dates: start: 201307

REACTIONS (2)
  - Thyroid neoplasm [Recovering/Resolving]
  - Papilloma [Recovering/Resolving]
